FAERS Safety Report 7538198-9 (Version None)
Quarter: 2011Q2

REPORT INFORMATION
  Report Type: 
  Country: None (occurrence: None)
  Receive Date: 20110609
  Receipt Date: 20020520
  Transmission Date: 20111010
  Serious: Yes (Death, Hospitalization)
  Sender: FDA-Public Use
  Company Number: PHFR2002GB01372

PATIENT
  Sex: Male

DRUGS (1)
  1. CLOZAPINE [Suspect]
     Indication: SCHIZOPHRENIA
     Dosage: 400MG/DAY
     Route: 048
     Dates: start: 19950110

REACTIONS (4)
  - PNEUMONIA [None]
  - LUNG ABSCESS [None]
  - SEPSIS [None]
  - WHITE BLOOD CELL COUNT INCREASED [None]
